FAERS Safety Report 4762389-3 (Version None)
Quarter: 2005Q3

REPORT INFORMATION
  Report Type: 
  Country: None (occurrence: None)
  Receive Date: 20050907
  Receipt Date: 20050830
  Transmission Date: 20060218
  Serious: Yes (Other)
  Sender: FDA-Public Use
  Company Number: PHBS2005BR12636

PATIENT
  Age: 67 Year
  Sex: Male
  Weight: 83 kg

DRUGS (12)
  1. FORADIL [Suspect]
     Indication: EMPHYSEMA
     Dosage: 12 UG, ONCE/SINGLE
     Route: 048
     Dates: start: 20050830, end: 20050830
  2. FORADIL [Suspect]
     Dosage: 12 UG, BID
     Dates: start: 20040701
  3. SERETIDE [Concomitant]
     Indication: EMPHYSEMA
     Dosage: 1 DF, BID (50/500MCG)
     Route: 048
     Dates: start: 20050830
  4. AMLODIPINE [Concomitant]
     Indication: HYPERTENSION
     Dosage: 5 MG, QD
     Route: 048
     Dates: start: 20030101
  5. VASOPRIL [Concomitant]
     Indication: HYPERTENSION
     Dosage: 1 DF, QD (20/12.5MG)
     Route: 048
     Dates: start: 20030101
  6. MODURETIC 5-50 [Concomitant]
     Indication: HYPERTENSION
     Dosage: 50 MG, QD
     Route: 048
     Dates: start: 20030101
  7. GLUCOFORMIN [Concomitant]
     Indication: DIABETES MELLITUS
     Dosage: 850 MG, TID
     Route: 048
     Dates: start: 20030101
  8. BAMIFIX [Concomitant]
     Indication: EMPHYSEMA
     Dosage: 600 MG, BID
     Route: 048
     Dates: start: 20030101
  9. PRELONE [Concomitant]
     Indication: EMPHYSEMA
     Dosage: 20 MG, QD
     Route: 048
     Dates: start: 20040101
  10. AAS [Concomitant]
     Indication: PROPHYLAXIS
     Dosage: 100 MG, QD
     Route: 048
     Dates: start: 20030101
  11. SINGULAIR [Concomitant]
     Indication: EMPHYSEMA
     Dosage: 10 MG, QD
     Route: 048
     Dates: start: 20030101
  12. SIMVASTATIN [Concomitant]
     Indication: BLOOD CHOLESTEROL
     Dosage: 10 MG, QD
     Route: 048
     Dates: start: 20040101

REACTIONS (3)
  - ACCIDENTAL EXPOSURE [None]
  - BENIGN PROSTATIC HYPERPLASIA [None]
  - DRUG ADMINISTRATION ERROR [None]
